FAERS Safety Report 4686766-4 (Version None)
Quarter: 2005Q2

REPORT INFORMATION
  Report Type: 
  Country: None (occurrence: None)
  Receive Date: 20050608
  Receipt Date: 20050524
  Transmission Date: 20051028
  Serious: Yes (Other)
  Sender: FDA-Public Use
  Company Number: BCM-000908

PATIENT
  Age: 51 Year
  Sex: Male

DRUGS (1)
  1. PROHANCE [Suspect]
     Indication: NUCLEAR MAGNETIC RESONANCE IMAGING
     Dosage: 10 ML IV
     Route: 042
     Dates: start: 20050512, end: 20050512

REACTIONS (2)
  - NAUSEA [None]
  - THROAT TIGHTNESS [None]
